FAERS Safety Report 6422860-5 (Version None)
Quarter: 2009Q4

REPORT INFORMATION
  Report Type: 
  Country: None (occurrence: None)
  Receive Date: 20091102
  Receipt Date: 20091020
  Transmission Date: 20100525
  Serious: Yes (Disabling)
  Sender: FDA-Public Use
  Company Number: DE-ROCHE-662610

PATIENT
  Sex: Female
  Weight: 70 kg

DRUGS (6)
  1. PEGASYS [Suspect]
     Indication: HEPATITIS C
     Dosage: FORM: PRE-FILLED SYRINGE
     Route: 065
     Dates: start: 20090803
  2. COPEGUS [Suspect]
     Indication: HEPATITIS C
     Route: 065
     Dates: start: 20090803
  3. EFEROX [Concomitant]
     Indication: HYPOTHYROIDISM
  4. METOPROLOL [Concomitant]
     Dates: start: 20090925
  5. NOOTROP [Concomitant]
     Dosage: FORM: DRINK AMPULE
     Dates: start: 20091009
  6. CALCIVIT [Concomitant]
     Indication: OSTEOPOROSIS
     Dosage: FORM: CHEWABLE TABLET

REACTIONS (4)
  - COUGH [None]
  - EAR DISCOMFORT [None]
  - HYPOACUSIS [None]
  - TINNITUS [None]
